FAERS Safety Report 26090708 (Version 1)
Quarter: 2025Q4

REPORT INFORMATION
  Report Type: Spontaneous
  Country: JP (occurrence: JP)
  Receive Date: 20251126
  Receipt Date: 20251126
  Transmission Date: 20260117
  Serious: Yes (Hospitalization, Other)
  Sender: MERCK SHARP & DOHME LLC
  Company Number: JP-009507513-2353309

PATIENT
  Age: 6 Decade
  Sex: Female

DRUGS (1)
  1. KEYTRUDA [Suspect]
     Active Substance: PEMBROLIZUMAB
     Indication: Breast cancer stage II

REACTIONS (6)
  - Neuropathy peripheral [Unknown]
  - Diabetic ketoacidosis [Unknown]
  - Acute kidney injury [Unknown]
  - Mental disorder [Unknown]
  - Rash [Unknown]
  - Fulminant type 1 diabetes mellitus [Unknown]
